FAERS Safety Report 15402303 (Version 1)
Quarter: 2018Q3

REPORT INFORMATION
  Report Type: Spontaneous
  Country: US (occurrence: US)
  Receive Date: 20180919
  Receipt Date: 20180919
  Transmission Date: 20181010
  Serious: No
  Sender: FDA-Public Use
  Company Number: US-ALEMBIC PHARMACUETICALS LIMITED-2018SCAL000408

PATIENT

DRUGS (6)
  1. MODAFINIL. [Suspect]
     Active Substance: MODAFINIL
     Indication: NARCOLEPSY
  2. ATENOLOL. [Concomitant]
     Active Substance: ATENOLOL
     Indication: HEART RATE ABNORMAL
     Dosage: 25 MILLIGRAM
     Route: 065
  3. MODAFINIL. [Suspect]
     Active Substance: MODAFINIL
     Indication: CHRONIC FATIGUE SYNDROME
     Dosage: UNK
     Route: 048
     Dates: start: 2017
  4. MODAFINIL. [Suspect]
     Active Substance: MODAFINIL
     Indication: MIGRAINE
  5. MODAFINIL. [Suspect]
     Active Substance: MODAFINIL
     Indication: FIBROMYALGIA
     Dosage: 200 MILLIGRAM, QD
     Route: 048
     Dates: start: 2018
  6. TRAMADOL. [Concomitant]
     Active Substance: TRAMADOL
     Indication: PAIN MANAGEMENT
     Dosage: UNK
     Route: 065

REACTIONS (2)
  - Product odour abnormal [Unknown]
  - Nausea [Unknown]

NARRATIVE: CASE EVENT DATE: 2018
